FAERS Safety Report 10183049 (Version 1)
Quarter: 2014Q2

REPORT INFORMATION
  Report Type: Spontaneous
  Country: US (occurrence: US)
  Receive Date: 20140520
  Receipt Date: 20140520
  Transmission Date: 20141212
  Serious: No
  Sender: FDA-Public Use
  Company Number: US-PFIZER INC-2014136145

PATIENT
  Age: 50 Year
  Sex: Female

DRUGS (2)
  1. PRISTIQ [Suspect]
     Indication: ATTENTION DEFICIT/HYPERACTIVITY DISORDER
     Dosage: 50 MG, 1X/DAY
     Dates: start: 20140320, end: 20140515
  2. PRISTIQ [Suspect]
     Indication: DEPRESSION

REACTIONS (2)
  - Weight increased [Unknown]
  - Hunger [Unknown]
